FAERS Safety Report 9100251 (Version 2)
Quarter: 2013Q1

REPORT INFORMATION
  Report Type: Spontaneous
  Country: IT (occurrence: IT)
  Receive Date: 20130215
  Receipt Date: 20130312
  Transmission Date: 20140127
  Serious: Yes (Hospitalization)
  Sender: FDA-Public Use
  Company Number: IT-ASTRAZENECA-2013SE07456

PATIENT
  Age: 13 Year
  Sex: Female
  Weight: 57 kg

DRUGS (6)
  1. ESOMEPRAZOLE [Suspect]
     Indication: INTENTIONAL OVERDOSE
     Route: 048
     Dates: start: 20130102, end: 20130102
  2. SPORANOX [Suspect]
     Indication: INTENTIONAL OVERDOSE
     Route: 048
     Dates: start: 20130102, end: 20130102
  3. LAROXYL [Suspect]
     Indication: INTENTIONAL OVERDOSE
     Dosage: 40MG ORAL DROPS, VIAL SOLUTION 100 ML, 10 GTT ONCE/SINGLE ADMINISTARTION
     Route: 048
     Dates: start: 20130102, end: 20130102
  4. ALPRAZOLAM [Suspect]
     Indication: INTENTIONAL OVERDOSE
     Route: 048
     Dates: start: 20130102, end: 20130102
  5. PANTOPRAZOLE [Suspect]
     Indication: INTENTIONAL OVERDOSE
     Route: 048
     Dates: start: 20130102, end: 20130102
  6. MORNIFLUMATO [Suspect]
     Indication: INTENTIONAL OVERDOSE
     Route: 048
     Dates: start: 20130102, end: 20130102

REACTIONS (4)
  - Aphasia [Recovered/Resolved]
  - Sopor [Recovered/Resolved]
  - Drug abuse [Unknown]
  - Self injurious behaviour [Unknown]
